FAERS Safety Report 4641786-0 (Version None)
Quarter: 2005Q2

REPORT INFORMATION
  Report Type: 
  Country: None (occurrence: None)
  Receive Date: 20050421
  Receipt Date: 20050217
  Transmission Date: 20051028
  Serious: Yes (Disabling)
  Sender: FDA-Public Use
  Company Number: US-MERCK-0502USA02282

PATIENT
  Age: 78 Year
  Sex: Female

DRUGS (5)
  1. ZOCOR [Suspect]
     Indication: HYPERCHOLESTEROLAEMIA
     Route: 048
     Dates: start: 20041001, end: 20050201
  2. METOPROLOL [Concomitant]
     Route: 065
  3. PLAVIX [Concomitant]
     Route: 065
  4. ASPIRIN [Concomitant]
     Route: 065
  5. CAPTOPRIL [Concomitant]
     Route: 065

REACTIONS (4)
  - ADVERSE EVENT [None]
  - ARTHRALGIA [None]
  - PAIN IN EXTREMITY [None]
  - PYREXIA [None]
